FAERS Safety Report 14626841 (Version 3)
Quarter: 2018Q2

REPORT INFORMATION
  Report Type: Report from Study
  Country: US (occurrence: US)
  Receive Date: 20180312
  Receipt Date: 20180427
  Transmission Date: 20180711
  Serious: No
  Sender: FDA-Public Use
  Company Number: US-OTSUKA-2018_005986

PATIENT
  Age: 57 Year
  Sex: Female
  Weight: 80.6 kg

DRUGS (13)
  1. TOLVAPTAN [Suspect]
     Active Substance: TOLVAPTAN
     Indication: CONGENITAL CYSTIC KIDNEY DISEASE
     Dosage: 90 MG, QD (IN THE MORNING)
     Route: 048
     Dates: start: 20151218, end: 20180110
  2. LISINOPRIL. [Concomitant]
     Active Substance: LISINOPRIL
     Indication: HYPERTENSION
     Dosage: 10 MG, QD
     Route: 048
     Dates: start: 20160908
  3. ELIQUIS [Concomitant]
     Active Substance: APIXABAN
     Indication: LISFRANC FRACTURE
     Dosage: 2.5 MG, BID
     Route: 048
     Dates: start: 20171029, end: 20171031
  4. TOLVAPTAN [Suspect]
     Active Substance: TOLVAPTAN
     Dosage: 30 MG, QD (IN THE EVENING)
     Route: 048
     Dates: start: 20151218, end: 20180110
  5. TOLVAPTAN [Suspect]
     Active Substance: TOLVAPTAN
     Dosage: 30 MG, QD (IN THE MORNING)
     Route: 048
     Dates: start: 20151210, end: 20151210
  6. TOLVAPTAN [Suspect]
     Active Substance: TOLVAPTAN
     Dosage: 45 MG, QD (IN THE MORNING)
     Route: 048
     Dates: start: 20151211, end: 20151215
  7. TOLVAPTAN [Suspect]
     Active Substance: TOLVAPTAN
     Dosage: 30 MG, QD (IN THE EVENING)
     Route: 048
     Dates: start: 20151216, end: 20151217
  8. TOLVAPTAN [Suspect]
     Active Substance: TOLVAPTAN
     Dosage: 15 MG, QD (IN THE EVENING)
     Route: 048
     Dates: start: 20151211, end: 20151215
  9. TOLVAPTAN [Suspect]
     Active Substance: TOLVAPTAN
     Dosage: 60 MG, QD (IN THE MORNING)
     Route: 048
     Dates: start: 20151216, end: 20151217
  10. ESTRACE [Concomitant]
     Active Substance: ESTRADIOL
     Indication: VULVOVAGINAL DRYNESS
     Dosage: 1 G, QW (1X/WEEK)
     Route: 067
     Dates: start: 20151119
  11. SIMVASTATIN. [Concomitant]
     Active Substance: SIMVASTATIN
     Indication: BLOOD CHOLESTEROL INCREASED
     Dosage: 10 MG, QD
     Route: 048
     Dates: start: 2013
  12. TOLVAPTAN [Suspect]
     Active Substance: TOLVAPTAN
     Dosage: 15 MG, QD (IN THE EVENING)
     Route: 048
     Dates: start: 20151210, end: 20151210
  13. ZOLOFT [Concomitant]
     Active Substance: SERTRALINE HYDROCHLORIDE
     Indication: DEPRESSION
     Dosage: 50 MG, QD
     Route: 048
     Dates: start: 20161208

REACTIONS (1)
  - Urinary incontinence [Recovered/Resolved]

NARRATIVE: CASE EVENT DATE: 201711
